FAERS Safety Report 21653549 (Version 1)
Quarter: 2022Q4

REPORT INFORMATION
  Report Type: Spontaneous
  Country: US (occurrence: None)
  Receive Date: 20221129
  Receipt Date: 20221129
  Transmission Date: 20230112
  Serious: No
  Sender: FDA-Public Use
  Company Number: 2022A362219

PATIENT
  Age: 978 Month
  Sex: Female
  Weight: 54.4 kg

DRUGS (1)
  1. PULMICORT FLEXHALER [Suspect]
     Active Substance: BUDESONIDE
     Indication: Chronic obstructive pulmonary disease
     Dosage: 180 MCG TWO PUFFS TWICE EACH DAY
     Route: 055
     Dates: start: 2016

REACTIONS (5)
  - Infection [Recovered/Resolved]
  - Inappropriate schedule of product administration [Recovered/Resolved]
  - Device use issue [Unknown]
  - Device malfunction [Unknown]
  - Device malfunction [Unknown]

NARRATIVE: CASE EVENT DATE: 20220301
